FAERS Safety Report 5818629-2 (Version None)
Quarter: 2008Q3

REPORT INFORMATION
  Report Type: 
  Country: None (occurrence: None)
  Receive Date: 20080723
  Receipt Date: 20080716
  Transmission Date: 20090109
  Serious: Yes (Hospitalization)
  Sender: FDA-Public Use
  Company Number: US-ELI_LILLY_AND_COMPANY-US200807003254

PATIENT
  Sex: Female

DRUGS (11)
  1. BYETTA [Suspect]
     Indication: TYPE 2 DIABETES MELLITUS
     Dosage: 5 UG, 2/D
     Route: 058
     Dates: start: 20071001, end: 20071101
  2. BYETTA [Suspect]
     Dosage: 10 UG, 2/D
     Route: 058
     Dates: start: 20071101
  3. TOPROL-XL [Concomitant]
     Indication: ATRIAL FIBRILLATION
     Dosage: 100 MG, DAILY (1/D)
     Route: 048
     Dates: start: 20071201
  4. FEXOFENADINE [Concomitant]
     Indication: MULTIPLE ALLERGIES
     Dosage: 180 MG, DAILY (1/D)
     Route: 048
     Dates: start: 20040101, end: 20080713
  5. METFORMIN HCL [Concomitant]
     Indication: TYPE 2 DIABETES MELLITUS
     Dosage: 750 MG, 3/D
     Route: 048
     Dates: start: 20060101
  6. LOTREL [Concomitant]
     Indication: HEART RATE IRREGULAR
     Dosage: UNK, DAILY (1/D)
     Route: 048
     Dates: start: 20080601
  7. AMBIEN [Concomitant]
     Indication: SLEEP APNOEA SYNDROME
     Dosage: 10 MG, DAILY (1/D)
     Route: 048
     Dates: start: 20080101
  8. LEVOXYL [Concomitant]
     Indication: THYROID DISORDER
     Dosage: 0.05 MG, DAILY (1/D)
     Route: 048
     Dates: start: 20060101
  9. ASPIRIN [Concomitant]
     Indication: HEART RATE IRREGULAR
     Dosage: 81 MG, DAILY (1/D)
     Route: 048
     Dates: start: 20060101
  10. VYTORIN [Concomitant]
     Indication: BLOOD CHOLESTEROL INCREASED
     Dosage: UNK, DAILY (1/D)
     Route: 048
     Dates: start: 20070101
  11. THYROID THERAPY [Concomitant]
     Indication: THYROID DISORDER
     Dosage: 30 MG, DAILY (1/D)
     Route: 048

REACTIONS (6)
  - ARTHRALGIA [None]
  - ASTHMA [None]
  - BACK PAIN [None]
  - COUGH [None]
  - ERUCTATION [None]
  - GASTROOESOPHAGEAL REFLUX DISEASE [None]
